FAERS Safety Report 5834941-5 (Version None)
Quarter: 2008Q3

REPORT INFORMATION
  Report Type: 
  Country: None (occurrence: None)
  Receive Date: 20080801
  Receipt Date: 20080716
  Transmission Date: 20090109
  Serious: Yes (Hospitalization)
  Sender: FDA-Public Use
  Company Number: 8034762

PATIENT
  Age: 3 Year
  Sex: Female
  Weight: 17 kg

DRUGS (2)
  1. XOZAL [Suspect]
     Indication: OTITIS MEDIA
     Dosage: 2.5 ML ONCE PO
     Route: 048
     Dates: start: 20080715, end: 20080715
  2. XOZAL [Suspect]
     Indication: RHINITIS ALLERGIC
     Dosage: 2.5 ML ONCE PO
     Route: 048
     Dates: start: 20080715, end: 20080715

REACTIONS (4)
  - INCORRECT DOSE ADMINISTERED [None]
  - PYREXIA [None]
  - SEDATION [None]
  - VOMITING [None]
